FAERS Safety Report 10648441 (Version 4)
Quarter: 2016Q2

REPORT INFORMATION
  Report Type: Report from Study
  Country: DE (occurrence: DE)
  Receive Date: 20141212
  Receipt Date: 20160401
  Transmission Date: 20160815
  Serious: Yes (Life-Threatening, Hospitalization, Other)
  Sender: FDA-Public Use
  Company Number: PHHY2014DE117074

PATIENT
  Sex: Female
  Weight: 65 kg

DRUGS (6)
  1. AFINITOR [Suspect]
     Active Substance: EVEROLIMUS
     Indication: BREAST CANCER METASTATIC
     Dosage: 5 MG, QD
     Route: 048
     Dates: start: 20140821, end: 20140906
  2. PANTOZOL [Concomitant]
     Active Substance: PANTOPRAZOLE SODIUM
     Indication: ABDOMINAL DISCOMFORT
     Dosage: 40 MG, QD
     Route: 065
  3. PANTOZOL [Concomitant]
     Active Substance: PANTOPRAZOLE SODIUM
     Dosage: UNK
     Route: 042
  4. BELOC-ZOC MITE [Concomitant]
     Active Substance: METOPROLOL SUCCINATE
     Indication: HYPERTENSION
     Dosage: 47.5 MG, UNK
     Route: 065
  5. LETROZOLE. [Concomitant]
     Active Substance: LETROZOLE
     Indication: BREAST CANCER METASTATIC
     Dosage: UNK
     Dates: start: 20140821, end: 20140906
  6. BICANORM [Concomitant]
     Active Substance: SODIUM BICARBONATE
     Indication: PRODUCT USED FOR UNKNOWN INDICATION
     Dosage: 1 DF, BID
     Route: 065

REACTIONS (20)
  - General physical health deterioration [Recovered/Resolved]
  - Pleural effusion [Unknown]
  - Blood urea increased [Unknown]
  - Dehydration [Recovered/Resolved]
  - Mitral valve incompetence [Unknown]
  - Adrenal cyst [Unknown]
  - Hypotonia [Unknown]
  - Blood creatinine increased [Unknown]
  - Normochromic normocytic anaemia [Unknown]
  - Haemoglobin decreased [Unknown]
  - Azotaemia [Recovered/Resolved]
  - Dilatation ventricular [Unknown]
  - Abdominal distension [Unknown]
  - Pericardial disease [Unknown]
  - Abdominal pain upper [Recovered/Resolved]
  - Breath odour [Unknown]
  - Weight decreased [Unknown]
  - Aortic arteriosclerosis [Unknown]
  - Renal failure [Recovered/Resolved]
  - Vomiting [Recovered/Resolved]

NARRATIVE: CASE EVENT DATE: 20140903
